FAERS Safety Report 6998435-6 (Version None)
Quarter: 2010Q3

REPORT INFORMATION
  Report Type: 
  Country: None (occurrence: None)
  Receive Date: 20100920
  Receipt Date: 20100908
  Transmission Date: 20110219
  Serious: Yes (Other)
  Sender: FDA-Public Use
  Company Number: PT-JNJFOC-20100708897

PATIENT
  Sex: Male

DRUGS (2)
  1. REMICADE [Suspect]
     Indication: PSORIASIS
     Dosage: INITIATED ONE YEAR AGO
     Route: 042
  2. REMICADE [Suspect]
     Dosage: INITIATED ONE YEAR AGO
     Route: 042

REACTIONS (2)
  - OSTEOARTHRITIS [None]
  - PSORIASIS [None]
